FAERS Safety Report 8923241 (Version 1)
Quarter: 2012Q4

REPORT INFORMATION
  Report Type: 
  Country: US (occurrence: US)
  Receive Date: 20121123
  Receipt Date: 20121123
  Transmission Date: 20130627
  Serious: Yes (Hospitalization, Other)
  Sender: FDA-Public Use
  Company Number: US-JNJFOC-20121111493

PATIENT
  Sex: Female

DRUGS (13)
  1. TYLENOL [Suspect]
     Route: 065
  2. TYLENOL [Suspect]
     Indication: PRODUCT USED FOR UNKNOWN INDICATION
     Route: 065
  3. ADVIL [Suspect]
     Indication: PRODUCT USED FOR UNKNOWN INDICATION
     Route: 065
  4. CLINDAMYCIN [Suspect]
     Indication: PRODUCT USED FOR UNKNOWN INDICATION
     Route: 065
  5. RISPERIDONE [Concomitant]
  6. VITAMIN D [Concomitant]
  7. MULTIVITAMINS [Concomitant]
  8. COVERSYL [Concomitant]
  9. ACETYLSALICYLIC ACID [Concomitant]
  10. SYNTHROID [Concomitant]
  11. METFORMIN [Concomitant]
  12. CRESTOR [Concomitant]
  13. OMEPRAZOLE [Concomitant]

REACTIONS (2)
  - Suicide attempt [Unknown]
  - Overdose [Unknown]
